FAERS Safety Report 11132024 (Version 10)
Quarter: 2017Q4

REPORT INFORMATION
  Report Type: Report from Study
  Country: US (occurrence: US)
  Receive Date: 20150522
  Receipt Date: 20171204
  Transmission Date: 20180320
  Serious: Yes (Hospitalization)
  Sender: FDA-Public Use
  Company Number: US-ACTELION-A-NJ2015-118175

PATIENT
  Age: 75 Year
  Sex: Female
  Weight: 67.57 kg

DRUGS (7)
  1. AMLODIPINE [Concomitant]
     Active Substance: AMLODIPINE BESYLATE
  2. TYVASO [Suspect]
     Active Substance: TREPROSTINIL
     Indication: PRODUCT USED FOR UNKNOWN INDICATION
     Dosage: UNK, 12 BREATHS
     Route: 055
  3. ASPIRIN. [Concomitant]
     Active Substance: ASPIRIN
  4. OPSUMIT [Suspect]
     Active Substance: MACITENTAN
     Indication: PULMONARY HYPERTENSION
     Dosage: 10 MG, QD
     Route: 048
     Dates: start: 201403
  5. OXYGEN. [Concomitant]
     Active Substance: OXYGEN
     Dosage: 3 L/MIN, UNK
  6. OPSUMIT [Suspect]
     Active Substance: MACITENTAN
     Dosage: UNK
     Route: 048
  7. ADEMPAS [Suspect]
     Active Substance: RIOCIGUAT
     Indication: PRODUCT USED FOR UNKNOWN INDICATION
     Route: 065

REACTIONS (15)
  - Cyanosis [Recovered/Resolved]
  - Dizziness [Unknown]
  - Fatigue [Unknown]
  - Middle ear effusion [Unknown]
  - Ear tube insertion [Unknown]
  - Upper respiratory tract infection [Unknown]
  - Arterial repair [Recovered/Resolved]
  - Chronic obstructive pulmonary disease [Recovering/Resolving]
  - Oxygen saturation decreased [Unknown]
  - Oedema peripheral [Unknown]
  - Renal impairment [Unknown]
  - Blood pressure decreased [Unknown]
  - Dyspnoea [Recovering/Resolving]
  - Thrombosis [Unknown]
  - Ear pain [Unknown]

NARRATIVE: CASE EVENT DATE: 201403
